FAERS Safety Report 5302331-X (Version None)
Quarter: 2007Q2

REPORT INFORMATION
  Report Type: 
  Country: None (occurrence: None)
  Receive Date: 20070419
  Receipt Date: 20070413
  Transmission Date: 20071010
  Serious: Yes (Life-Threatening, Hospitalization, Other)
  Sender: FDA-Public Use
  Company Number: GBWYE468213APR07

PATIENT
  Age: 44 Year
  Sex: Female
  Weight: 79.5 kg

DRUGS (4)
  1. VENLAFAXINE HYDROCHLORIDE [Suspect]
     Indication: DEPRESSION
     Route: 048
     Dates: start: 20061001, end: 20061221
  2. PARACETAMOL [Concomitant]
     Dosage: UNKNOWN
  3. SOLPADOL [Concomitant]
     Dosage: UNKNOWN
  4. CO-DYDRAMOL [Concomitant]
     Dosage: UNKNOWN

REACTIONS (2)
  - NEUTROPENIA [None]
  - SEPSIS [None]
